FAERS Safety Report 5061578-0 (Version None)
Quarter: 2006Q3

REPORT INFORMATION
  Report Type: 
  Country: None (occurrence: None)
  Receive Date: 20060721
  Receipt Date: 20060707
  Transmission Date: 20061208
  Serious: Yes (Hospitalization)
  Sender: FDA-Public Use
  Company Number: 2006PV017109

PATIENT
  Age: 60 Year
  Sex: Female
  Weight: 113.3993 kg

DRUGS (7)
  1. SYMLIN [Suspect]
     Indication: DIABETES MELLITUS NON-INSULIN-DEPENDENT
     Dosage: 60 MCG; QD; SC
     Route: 058
     Dates: start: 20060601, end: 20060628
  2. NOVOLOG [Concomitant]
  3. COREG [Concomitant]
  4. LASIX [Concomitant]
  5. LOVASTATIN [Concomitant]
  6. AVAPRO [Concomitant]
  7. ALBUTEROL SPIROS [Concomitant]

REACTIONS (7)
  - ATRIAL FIBRILLATION [None]
  - CONDITION AGGRAVATED [None]
  - CONVULSION [None]
  - DIABETES MELLITUS INADEQUATE CONTROL [None]
  - DIABETIC KETOACIDOSIS [None]
  - MENTAL STATUS CHANGES [None]
  - RESPIRATORY DISORDER [None]
